FAERS Safety Report 8305727-7 (Version None)
Quarter: 2012Q2

REPORT INFORMATION
  Report Type: 
  Country: None (occurrence: None)
  Receive Date: 20120418
  Receipt Date: 20120409
  Transmission Date: 20120825
  Serious: Yes (Life-Threatening, Hospitalization, Other)
  Sender: FDA-Public Use
  Company Number: DAV-AE-MTX-12-26

PATIENT
  Age: 71 Year
  Sex: Female
  Weight: 49.5 kg

DRUGS (16)
  1. ENBREL [Suspect]
     Indication: RHEUMATOID ARTHRITIS
     Dosage: 25MG, 2X/WK, SUBCUTANEOUS
     Route: 058
     Dates: start: 20090304
  2. RHEUMATREX [Suspect]
     Indication: RHEUMATOID ARTHRITIS
     Dosage: 5 MG, QWK, ORAL
     Route: 048
     Dates: start: 19960201
  3. FOLIC ACID [Concomitant]
  4. SELBEX (TEPRENONEL) [Concomitant]
  5. WARFARIN SODIUM [Concomitant]
  6. EURODIN (DIHYDROERGOCRISTINE MESILATE) [Concomitant]
  7. ALFAROL (ALFACALCIDOL) [Concomitant]
  8. FAMOTIDINE [Concomitant]
  9. CORTRIL [Concomitant]
  10. PURESENNID (SENNA ALEXANDRINA LEAF) [Concomitant]
  11. DEPAS (ETIZOLAM) [Concomitant]
  12. RHEUMATREX [Suspect]
     Dosage: 6 MG,QWK, ORAL
     Route: 048
  13. ALENDRONATE SODIUM [Concomitant]
  14. RIZE (CLOTIAZEPAM) [Concomitant]
  15. PAXIL [Concomitant]
  16. MAGMITT (MAGNESIUM OXIDE) [Concomitant]

REACTIONS (9)
  - THROMBOPHLEBITIS [None]
  - PNEUMOCYSTIS TEST POSITIVE [None]
  - ORGANISING PNEUMONIA [None]
  - PULMONARY EMBOLISM [None]
  - PAIN [None]
  - PULMONARY ALVEOLAR HAEMORRHAGE [None]
  - VASCULITIS [None]
  - FALL [None]
  - MOBILITY DECREASED [None]
